FAERS Safety Report 8209114-1 (Version None)
Quarter: 2012Q1

REPORT INFORMATION
  Report Type: 
  Country: None (occurrence: None)
  Receive Date: 20120314
  Receipt Date: 20120306
  Transmission Date: 20120608
  Serious: Yes (Hospitalization)
  Sender: FDA-Public Use
  Company Number: FR-ABBOTT-12P-056-0912177-00

PATIENT
  Sex: Female

DRUGS (9)
  1. CLARITHROMYCIN [Suspect]
     Indication: EAR INFECTION
  2. COLPOTROPHINE [Suspect]
     Dosage: ONCE
     Route: 067
     Dates: start: 20111025, end: 20111025
  3. COLPOTROPHINE [Suspect]
     Dosage: ONCE
     Route: 067
     Dates: start: 20111031, end: 20111031
  4. CLARITHROMYCIN [Suspect]
     Indication: UPPER RESPIRATORY TRACT INFECTION
     Route: 048
     Dates: start: 20111024, end: 20111029
  5. COLPOTROPHINE [Suspect]
     Indication: PRODUCT USED FOR UNKNOWN INDICATION
     Dosage: ONCE
     Route: 067
     Dates: start: 20111021, end: 20111021
  6. FUNGIZONE [Suspect]
     Indication: PRODUCT USED FOR UNKNOWN INDICATION
     Dosage: TWO COFFEE SPOONS IN MORNING + AFTERNOON
     Dates: start: 20111024, end: 20111029
  7. CELEBREX [Concomitant]
     Indication: PRODUCT USED FOR UNKNOWN INDICATION
     Dosage: 1 DOSAGE FORM IN MORNING AND MID DAY
     Dates: start: 20111024, end: 20111026
  8. ACETAMINOPHEN [Concomitant]
     Indication: PAIN
  9. ATORVASTATIN [Concomitant]
     Indication: HYPERCHOLESTEROLAEMIA

REACTIONS (1)
  - ANAPHYLACTIC SHOCK [None]
